FAERS Safety Report 24651944 (Version 3)
Quarter: 2025Q2

REPORT INFORMATION
  Report Type: Report from Study
  Country: US (occurrence: US)
  Receive Date: 20241122
  Receipt Date: 20250428
  Transmission Date: 20250717
  Serious: Yes (Hospitalization)
  Sender: ROCHE
  Company Number: US-ROCHE-10000139128

PATIENT
  Age: 20 Year
  Sex: Female
  Weight: 34.02 kg

DRUGS (2)
  1. EVRYSDI [Suspect]
     Active Substance: RISDIPLAM
     Indication: Spinal muscular atrophy
     Route: 048
     Dates: start: 20220124
  2. EVRYSDI [Suspect]
     Active Substance: RISDIPLAM
     Dosage: DATE OF TREATMENT:  28-JAN-2023
     Route: 048
     Dates: start: 20220215, end: 20250320

REACTIONS (1)
  - Thrombocytopenia [Recovered/Resolved]

NARRATIVE: CASE EVENT DATE: 20241001
